FAERS Safety Report 5974699-2 (Version None)
Quarter: 2008Q4

REPORT INFORMATION
  Report Type: 
  Country: None (occurrence: None)
  Receive Date: 20081201
  Receipt Date: 20081124
  Transmission Date: 20090506
  Serious: Yes (Death, Other)
  Sender: FDA-Public Use
  Company Number: US-PFIZER INC-2008100391

PATIENT
  Sex: Female

DRUGS (1)
  1. LYRICA [Suspect]
     Dates: end: 20080401

REACTIONS (1)
  - DEATH [None]
